FAERS Safety Report 5781393-X (Version None)
Quarter: 2008Q2

REPORT INFORMATION
  Report Type: 
  Country: None (occurrence: None)
  Receive Date: 20080619
  Receipt Date: 20080604
  Transmission Date: 20081010
  Serious: Yes (Hospitalization)
  Sender: FDA-Public Use
  Company Number: ALK_00622_2008

PATIENT
  Age: 36 Year
  Sex: Male

DRUGS (2)
  1. VIVITROL [Suspect]
     Indication: ALCOHOLISM
     Dosage: (380 MG 1X/MONTH INTRAMUSCULAR)
     Route: 030
     Dates: start: 20080604
  2. PERCOCET [Concomitant]

REACTIONS (11)
  - AGITATION [None]
  - BURNING SENSATION [None]
  - CHILLS [None]
  - DRUG HYPERSENSITIVITY [None]
  - DRUG WITHDRAWAL SYNDROME [None]
  - DYSPHAGIA [None]
  - DYSPNOEA [None]
  - MYALGIA [None]
  - NAUSEA [None]
  - PALLOR [None]
  - PHARYNGEAL OEDEMA [None]
